FAERS Safety Report 4633171-2 (Version None)
Quarter: 2005Q2

REPORT INFORMATION
  Report Type: 
  Country: None (occurrence: None)
  Receive Date: 20050412
  Receipt Date: 20050406
  Transmission Date: 20051028
  Serious: Yes (Hospitalization, Other)
  Sender: FDA-Public Use
  Company Number: PHNU2005DE01564

PATIENT
  Age: 70 Year
  Sex: Female

DRUGS (15)
  1. CRANOC (LICENSED, FUJISAWA DEUTSCHLAND) [Suspect]
     Dosage: 80 MG, QD
     Route: 048
     Dates: start: 20050120, end: 20050307
  2. SORMODREN [Concomitant]
     Dosage: 2 MG, QD
  3. ISOKET RETARD [Concomitant]
     Dosage: 1 DF, QD
  4. CONCOR [Concomitant]
     Dosage: 2.5 MG, TID
  5. FUROSEMIDE [Concomitant]
     Dosage: 40 MG, BID
  6. ALLOPURINOL [Concomitant]
     Dosage: 300 MG, QD
  7. ASPIRIN [Concomitant]
     Dosage: 100 MG, QD
  8. SORTIS [Concomitant]
     Dosage: 40 MG, BID
  9. FADUL [Concomitant]
     Dosage: 40 MG, QD
  10. TRAMADOLOR [Concomitant]
     Dosage: 150MG/BID/PRN
  11. DIOVAN [Concomitant]
     Dosage: 0.5 DF, BID
  12. NITROGLYCERIN [Concomitant]
     Dosage: UNK, PRN
  13. FAUSTAN [Concomitant]
     Dosage: UNK, PRN
  14. CORVATON - SLOW RELEASE ^AVENTIS PHARMA^ [Concomitant]
     Dosage: 1 DF, QD
  15. STANGYL [Concomitant]
     Dosage: 15 MG, QD

REACTIONS (8)
  - BLOOD ALKALINE PHOSPHATASE INCREASED [None]
  - CHROMATURIA [None]
  - GAMMA-GLUTAMYLTRANSFERASE INCREASED [None]
  - HYPOTONIA [None]
  - LIVER FUNCTION TEST ABNORMAL [None]
  - MYOCARDIAL INFARCTION [None]
  - PAIN IN EXTREMITY [None]
  - TRANSAMINASES INCREASED [None]
